FAERS Safety Report 8082822-1 (Version None)
Quarter: 2012Q1

REPORT INFORMATION
  Report Type: 
  Country: None (occurrence: None)
  Receive Date: 20120127
  Receipt Date: 20110112
  Transmission Date: 20120608
  Serious: No
  Sender: FDA-Public Use
  Company Number: US-ABBOTT-11P-163-0697561-00

PATIENT
  Sex: Female
  Weight: 65.83 kg

DRUGS (4)
  1. METHOTREXATE [Concomitant]
     Indication: PSORIASIS
  2. HUMIRA [Suspect]
     Indication: PSORIASIS
     Route: 058
     Dates: start: 20080601
  3. FEMALE HORMONES [Concomitant]
     Indication: MENOPAUSE
  4. FOLIC ACID [Concomitant]
     Indication: PRODUCT USED FOR UNKNOWN INDICATION

REACTIONS (5)
  - JOINT STIFFNESS [None]
  - ARTHRALGIA [None]
  - OEDEMA PERIPHERAL [None]
  - ARTHRITIS [None]
  - JOINT SWELLING [None]
